FAERS Safety Report 15694015 (Version 1)
Quarter: 2018Q4

REPORT INFORMATION
  Report Type: Spontaneous
  Country: DE (occurrence: DE)
  Receive Date: 20181206
  Receipt Date: 20181206
  Transmission Date: 20190205
  Serious: Yes (Hospitalization, Other)
  Sender: FDA-Public Use
  Company Number: DE-009507513-1811DEU010878

PATIENT
  Age: 37 Year
  Sex: Female
  Weight: 70 kg

DRUGS (3)
  1. FOSFOMYCIN [Concomitant]
     Active Substance: FOSFOMYCIN
     Indication: URINARY TRACT INFECTION
     Route: 048
     Dates: start: 20181020
  2. CELESTAN [Suspect]
     Active Substance: BETAMETHASONE
     Indication: PROPHYLAXIS
     Route: 030
     Dates: start: 20181020
  3. FENOTEROL [Suspect]
     Active Substance: FENOTEROL
     Indication: PROPHYLAXIS
     Route: 042
     Dates: start: 20181020

REACTIONS (2)
  - Respiratory failure [Recovered/Resolved]
  - Pulmonary oedema [Recovered/Resolved]

NARRATIVE: CASE EVENT DATE: 20181021
